FAERS Safety Report 10120054 (Version 2)
Quarter: 2014Q2

REPORT INFORMATION
  Report Type: Spontaneous
  Country: US (occurrence: US)
  Receive Date: 20140425
  Receipt Date: 20140630
  Transmission Date: 20141212
  Serious: No
  Sender: FDA-Public Use
  Company Number: US-PFIZER INC-2014112980

PATIENT
  Age: 35 Year
  Sex: Female
  Weight: 53.52 kg

DRUGS (5)
  1. NEURONTIN [Suspect]
     Indication: DIABETIC NEUROPATHY
     Dosage: 300 MG, 3X/DAY
     Route: 048
     Dates: start: 201403
  2. HUMULIN 70/30 [Concomitant]
     Indication: TYPE 1 DIABETES MELLITUS
     Dosage: UNK
  3. LEVEMIR [Concomitant]
     Indication: TYPE 1 DIABETES MELLITUS
     Dosage: 21 UNITS AT DAY AND 21 UNITS AT NIGHT
  4. LANTUS INSULIN [Concomitant]
     Dosage: UNK
     Dates: start: 201207
  5. NOVOLIN 70/30 [Concomitant]
     Dosage: UNK
     Dates: start: 201207

REACTIONS (2)
  - Drug ineffective for unapproved indication [Unknown]
  - Glycosylated haemoglobin increased [Unknown]
